FAERS Safety Report 17923996 (Version 1)
Quarter: 2020Q2

REPORT INFORMATION
  Report Type: Spontaneous
  Country: DE (occurrence: DE)
  Receive Date: 20200622
  Receipt Date: 20200622
  Transmission Date: 20200714
  Serious: Yes (Hospitalization)
  Sender: FDA-Public Use
  Company Number: DE-TEVA-2020-DE-1789105

PATIENT
  Age: 68 Year
  Sex: Male
  Weight: 90.9 kg

DRUGS (10)
  1. PREDNISOLON [Suspect]
     Active Substance: PREDNISOLONE
     Dosage: 5 MILLIGRAM DAILY; 1-0-0-0
  2. ATORVASTATIN/EZETIMIB [Concomitant]
     Dosage: 1 DOSAGE FORMS DAILY; 20|10 MG, 0-0-1-0
  3. MARCUMAR [Concomitant]
     Active Substance: PHENPROCOUMON
     Dosage: ACCORDING TO INR
  4. ALLOPURINOL. [Concomitant]
     Active Substance: ALLOPURINOL
     Dosage: 300 MILLIGRAM DAILY; 0-0-1-0
  5. AMLODIPIN/OLMESARTAN [Concomitant]
     Dosage: 1 DOSAGE FORMS DAILY; 10|40 MG, 1-0-0-0
  6. COLCHICUM [Concomitant]
     Active Substance: COLCHICINE
     Dosage: 1 DOSAGE FORMS DAILY; 1-0-0-0
  7. PANTOPRAZOL [Concomitant]
     Active Substance: PANTOPRAZOLE SODIUM
     Dosage: 40 MILLIGRAM DAILY; 1-0-0-0
  8. BISOPROLOL [Concomitant]
     Active Substance: BISOPROLOL
     Dosage: 10 MILLIGRAM DAILY; 10 MG, 0.5-0-0.5-0
  9. ACETYLSALICYLSAURE [Concomitant]
     Active Substance: ASPIRIN
     Dosage: 100 MILLIGRAM DAILY;  0-1-0-0
  10. FERRO SANOL 40MG [Concomitant]
     Dosage: 1 DOSAGE FORMS DAILY; 1-0-0-0

REACTIONS (9)
  - Wheezing [Unknown]
  - Breath sounds abnormal [Unknown]
  - Oedema peripheral [Unknown]
  - Dyspnoea [Unknown]
  - Prolonged expiration [Unknown]
  - Productive cough [Unknown]
  - Tachypnoea [Unknown]
  - Cough [Unknown]
  - Pyrexia [Unknown]
